FAERS Safety Report 19615691 (Version 1)
Quarter: 2021Q3

REPORT INFORMATION
  Report Type: Spontaneous
  Country: US (occurrence: US)
  Receive Date: 20210727
  Receipt Date: 20210727
  Transmission Date: 20211014
  Serious: Yes (Other)
  Sender: FDA-Public Use
  Company Number: US-PFIZER INC-2021902096

PATIENT

DRUGS (1)
  1. NEURONTIN [Suspect]
     Active Substance: GABAPENTIN
     Dosage: UNK

REACTIONS (5)
  - Pituitary tumour [Unknown]
  - Headache [Unknown]
  - Muscle atrophy [Unknown]
  - Dizziness [Unknown]
  - Blindness [Unknown]

NARRATIVE: CASE EVENT DATE: 2019
